FAERS Safety Report 11122198 (Version 1)
Quarter: 2015Q2

REPORT INFORMATION
  Report Type: Spontaneous
  Country: US (occurrence: None)
  Receive Date: 20150518
  Receipt Date: 20150518
  Transmission Date: 20150821
  Serious: No
  Sender: FDA-Public Use
  Company Number: None

PATIENT
  Age: 70 Year
  Sex: Male
  Weight: 97 kg

DRUGS (1)
  1. CEFAZOLIN [Suspect]
     Active Substance: CEFAZOLIN
     Indication: INFECTION PROPHYLAXIS
     Dosage: 2 GM  ONCE  IV
     Route: 042
     Dates: start: 20150206, end: 20150206

REACTIONS (5)
  - Rash [None]
  - Pyrexia [None]
  - Erythema [None]
  - Urine output decreased [None]
  - Angioedema [None]

NARRATIVE: CASE EVENT DATE: 20150209
